FAERS Safety Report 9885749 (Version 2)
Quarter: 2014Q1

REPORT INFORMATION
  Report Type: Spontaneous
  Country: US (occurrence: US)
  Receive Date: 20140210
  Receipt Date: 20140218
  Transmission Date: 20141002
  Serious: Yes (Death)
  Sender: FDA-Public Use
  Company Number: US-BAYER-2014-017545

PATIENT
  Sex: Male
  Weight: 140 kg

DRUGS (2)
  1. PHILLIPS^ MILK OF MAGNESIA [Suspect]
     Indication: ANTIINFLAMMATORY THERAPY
     Dosage: 2-3 ML, OTHER FREQUENCY
     Route: 048
  2. PHILLIPS^ MILK OF MAGNESIA [Suspect]
     Indication: DETOXIFICATION

REACTIONS (2)
  - Death [Fatal]
  - Intentional drug misuse [None]
